FAERS Safety Report 4578411-3 (Version None)
Quarter: 2005Q1

REPORT INFORMATION
  Report Type: 
  Country: None (occurrence: None)
  Receive Date: 20050203
  Receipt Date: 20050203
  Transmission Date: 20050727
  Serious: Yes (Life-Threatening, Hospitalization)
  Sender: FDA-Public Use
  Company Number: None

PATIENT
  Age: 11 Year
  Sex: Male

DRUGS (1)
  1. MAALOX   REGULAR STRENGTH [Suspect]
     Indication: VARICELLA
     Dates: start: 20050119, end: 20050119

REACTIONS (1)
  - REYE'S SYNDROME [None]
